FAERS Safety Report 18342155 (Version 4)
Quarter: 2020Q4

REPORT INFORMATION
  Report Type: Report from Study
  Country: US (occurrence: US)
  Receive Date: 20201005
  Receipt Date: 20201230
  Transmission Date: 20210113
  Serious: No
  Sender: FDA-Public Use
  Company Number: US-B.I. PHARMACEUTICALS,INC./RIDGEFIELD-2020-BI-046799

PATIENT
  Age: 79 Year

DRUGS (3)
  1. CRESTOR [Concomitant]
     Active Substance: ROSUVASTATIN CALCIUM
     Indication: BLOOD CHOLESTEROL INCREASED
  2. OFEV [Suspect]
     Active Substance: NINTEDANIB
     Dosage: 150MG CAPSULE TWICE DAILY
     Route: 048
     Dates: start: 202008
  3. OFEV [Suspect]
     Active Substance: NINTEDANIB
     Indication: IDIOPATHIC PULMONARY FIBROSIS
     Dosage: 150 MG TWICE A DAY
     Route: 048
     Dates: start: 20200820, end: 20201014

REACTIONS (6)
  - Pain in extremity [Unknown]
  - Fall [Unknown]
  - Hernia [Not Recovered/Not Resolved]
  - Liver function test increased [Unknown]
  - Ulcer [Not Recovered/Not Resolved]
  - Transaminases increased [Recovered/Resolved]

NARRATIVE: CASE EVENT DATE: 2020
